FAERS Safety Report 4749982-9 (Version None)
Quarter: 2005Q3

REPORT INFORMATION
  Report Type: 
  Country: None (occurrence: None)
  Receive Date: 20050822
  Receipt Date: 20050412
  Transmission Date: 20060218
  Serious: Yes (Hospitalization)
  Sender: FDA-Public Use
  Company Number: CA-MERCK-0504CAN00120

PATIENT
  Age: 54 Year
  Sex: Male
  Weight: 114 kg

DRUGS (7)
  1. VIOXX [Suspect]
     Indication: ARTHRALGIA
     Route: 048
     Dates: start: 20040101, end: 20040301
  2. VIOXX [Suspect]
     Route: 048
     Dates: start: 20030731
  3. ACETAMINOPHEN [Concomitant]
     Indication: PAIN
     Route: 065
     Dates: start: 19850101
  4. PIROXICAM [Concomitant]
     Route: 065
     Dates: start: 20031105, end: 20031111
  5. DICLOFENAC [Concomitant]
     Indication: BACK PAIN
     Route: 065
     Dates: start: 20031112
  6. VASOTEC RPD [Concomitant]
     Indication: HYPERTENSION
     Route: 048
     Dates: start: 19930218
  7. VASOTEC RPD [Concomitant]
     Route: 048
     Dates: start: 19930211, end: 19930218

REACTIONS (9)
  - ANGINA UNSTABLE [None]
  - BLOOD PRESSURE INCREASED [None]
  - CARDIOMEGALY [None]
  - EJECTION FRACTION DECREASED [None]
  - HEADACHE [None]
  - HEART RATE DECREASED [None]
  - HYPOAESTHESIA [None]
  - LOW DENSITY LIPOPROTEIN ABNORMAL [None]
  - PROCEDURAL COMPLICATION [None]
